FAERS Safety Report 19902566 (Version 1)
Quarter: 2021Q3

REPORT INFORMATION
  Report Type: Spontaneous
  Country: CA (occurrence: CA)
  Receive Date: 20210930
  Receipt Date: 20210930
  Transmission Date: 20211014
  Serious: Yes (Life-Threatening, Hospitalization)
  Sender: FDA-Public Use
  Company Number: CA-TEVA-2021-CA-1958455

PATIENT
  Age: 13 Year
  Sex: Male
  Weight: 56 kg

DRUGS (3)
  1. VINCRISTINE SULFATE. [Suspect]
     Active Substance: VINCRISTINE SULFATE
     Route: 065
  2. PEGASPARGASE [Concomitant]
     Active Substance: PEGASPARGASE
     Route: 065
  3. CYTARABINE INJECTION [Concomitant]
     Active Substance: CYTARABINE

REACTIONS (1)
  - Febrile neutropenia [Recovering/Resolving]
